FAERS Safety Report 7229142-2 (Version None)
Quarter: 2011Q1

REPORT INFORMATION
  Report Type: 
  Country: None (occurrence: None)
  Receive Date: 20110117
  Receipt Date: 20110107
  Transmission Date: 20110831
  Serious: Yes (Hospitalization)
  Sender: FDA-Public Use
  Company Number: US-JNJFOC-20110100090

PATIENT
  Sex: Female
  Weight: 53.07 kg

DRUGS (5)
  1. REMICADE [Suspect]
     Indication: CROHN'S DISEASE
     Dosage: 13 INFUSIONS
     Route: 042
  2. ANTIDEPRESSANTS [Concomitant]
     Indication: CROHN'S DISEASE
  3. HUMIRA [Suspect]
     Indication: CROHN'S DISEASE
  4. MESALAMINE [Concomitant]
     Indication: CROHN'S DISEASE
  5. REMICADE [Suspect]
     Dosage: 28 INFUSIONS AT 5 MG/KG
     Route: 042

REACTIONS (2)
  - PERICARDITIS [None]
  - STAPHYLOCOCCAL ABSCESS [None]
